FAERS Safety Report 25573759 (Version 8)
Quarter: 2025Q4

REPORT INFORMATION
  Report Type: Report from Study
  Country: US (occurrence: None)
  Receive Date: 20250717
  Receipt Date: 20251231
  Transmission Date: 20260118
  Serious: Yes (Hospitalization, Other)
  Sender: SYNDAX
  Company Number: US-SYNDAX PHARMACEUTICALS, INC.-2025US000546

PATIENT
  Sex: Female
  Weight: 109.8 kg

DRUGS (1)
  1. REVUFORJ [Suspect]
     Active Substance: REVUMENIB CITRATE
     Indication: Product used for unknown indication
     Dosage: 160 MILLIGRAM, BID
     Route: 061

REACTIONS (8)
  - Drug ineffective [Unknown]
  - Infection [Unknown]
  - Chemotherapy [Unknown]
  - Platelet count decreased [Unknown]
  - Septic shock [Unknown]
  - Dyspnoea [Unknown]
  - Balance disorder [Unknown]
  - Off label use [Unknown]
